FAERS Safety Report 7264093-9 (Version None)
Quarter: 2011Q1

REPORT INFORMATION
  Report Type: 
  Country: None (occurrence: None)
  Receive Date: 20110130
  Receipt Date: 20101228
  Transmission Date: 20110831
  Serious: No
  Sender: FDA-Public Use
  Company Number: US-ABBOTT-11P-163-0694652-00

PATIENT
  Sex: Female
  Weight: 60.836 kg

DRUGS (2)
  1. MEDROL [Concomitant]
     Indication: ANKYLOSING SPONDYLITIS
  2. HUMIRA [Suspect]
     Indication: ANKYLOSING SPONDYLITIS
     Dates: start: 20100401, end: 20101001

REACTIONS (3)
  - BRONCHITIS [None]
  - VERTIGO [None]
  - MIGRAINE [None]
